FAERS Safety Report 25592005 (Version 1)
Quarter: 2025Q3

REPORT INFORMATION
  Report Type: Spontaneous
  Country: US (occurrence: US)
  Receive Date: 20250722
  Receipt Date: 20250722
  Transmission Date: 20251021
  Serious: No
  Sender: ALEXION PHARMACEUTICALS
  Company Number: US-AstraZeneca-CH-00911045AP

PATIENT
  Sex: Female

DRUGS (1)
  1. BREZTRI [Suspect]
     Active Substance: BUDESONIDE\FORMOTEROL\GLYCOPYRROLATE
     Indication: Chronic obstructive pulmonary disease
     Dosage: 160 MICROGRAM, BID
     Route: 065

REACTIONS (6)
  - Oropharyngeal discomfort [Unknown]
  - Device delivery system issue [Unknown]
  - Incorrect dose administered [Unknown]
  - Incorrect dose administered by device [Unknown]
  - Unevaluable event [Unknown]
  - Chronic obstructive pulmonary disease [Unknown]
